FAERS Safety Report 23656951 (Version 1)
Quarter: 2024Q1

REPORT INFORMATION
  Report Type: Spontaneous
  Country: NL (occurrence: NL)
  Receive Date: 20240321
  Receipt Date: 20240321
  Transmission Date: 20240410
  Serious: Yes (Other)
  Sender: FDA-Public Use
  Company Number: NL-AMGEN-NLDSP2024055286

PATIENT
  Sex: Female

DRUGS (1)
  1. FILGRASTIM [Suspect]
     Active Substance: FILGRASTIM
     Indication: Neutropenia
     Dosage: UNK
     Route: 065

REACTIONS (9)
  - Nephrotic syndrome [Unknown]
  - Secondary amyloidosis [Unknown]
  - Renal failure [Unknown]
  - Hepatosplenomegaly [Unknown]
  - Malaise [Unknown]
  - Pyrexia [Unknown]
  - Headache [Unknown]
  - Infection [Unknown]
  - Drug intolerance [Unknown]

NARRATIVE: CASE EVENT DATE: 20080101
